FAERS Safety Report 16764947 (Version 1)
Quarter: 2019Q3

REPORT INFORMATION
  Report Type: Other
  Country: GB (occurrence: GB)
  Receive Date: 20190903
  Receipt Date: 20190903
  Transmission Date: 20191005
  Serious: No
  Sender: FDA-Public Use
  Company Number: GB-LUPIN PHARMACEUTICALS INC.-2018-07230

PATIENT
  Age: 84 Year
  Sex: Male

DRUGS (2)
  1. MEMANTINE. [Suspect]
     Active Substance: MEMANTINE
     Indication: DEMENTIA
     Dosage: 15 MG, UNK
     Route: 048
     Dates: start: 20180506, end: 20180917
  2. MEMANTINE. [Suspect]
     Active Substance: MEMANTINE
     Dosage: DOSE REDUCED
     Route: 065

REACTIONS (1)
  - Constipation [Unknown]

NARRATIVE: CASE EVENT DATE: 20180506
